FAERS Safety Report 5412888-6 (Version None)
Quarter: 2007Q3

REPORT INFORMATION
  Report Type: 
  Country: None (occurrence: None)
  Receive Date: 20070713
  Receipt Date: 20070423
  Transmission Date: 20080115
  Serious: No
  Sender: FDA-Public Use
  Company Number: 2007SP001468

PATIENT
  Age: 78 Year
  Sex: Female
  Weight: 57.38 kg

DRUGS (5)
  1. LUNESTA [Suspect]
     Indication: INSOMNIA
     Dosage: 3 MG; HS; ORAL
     Route: 048
     Dates: start: 20070301, end: 20070101
  2. LUNESTA [Suspect]
     Dosage: 2 MG
  3. VERAPAMIL [Concomitant]
  4. LISINOPRIL [Concomitant]
  5. VICODIN [Concomitant]

REACTIONS (2)
  - DRUG INEFFECTIVE [None]
  - INSOMNIA [None]
